FAERS Safety Report 6093091-6 (Version None)
Quarter: 2009Q1

REPORT INFORMATION
  Report Type: 
  Country: None (occurrence: None)
  Receive Date: 20090224
  Receipt Date: 20090224
  Transmission Date: 20090719
  Serious: Yes (Disabling)
  Sender: FDA-Public Use
  Company Number: None

PATIENT
  Sex: Female
  Weight: 56.6996 kg

DRUGS (2)
  1. KENALOG [Suspect]
     Indication: DRY SKIN
     Dates: start: 20070920
  2. KENALOG [Suspect]
     Indication: DRY SKIN
     Dates: start: 20080728

REACTIONS (1)
  - INJECTION SITE REACTION [None]
